FAERS Safety Report 13869780 (Version 1)
Quarter: 2017Q3

REPORT INFORMATION
  Report Type: Spontaneous
  Country: IT (occurrence: IT)
  Receive Date: 20170815
  Receipt Date: 20170815
  Transmission Date: 20171127
  Serious: Yes (Death)
  Sender: FDA-Public Use
  Company Number: IT-TEVA-795291ACC

PATIENT
  Age: 58 Year
  Sex: Male

DRUGS (2)
  1. TEMOZOLOMIDE. [Suspect]
     Active Substance: TEMOZOLOMIDE
     Indication: PITUITARY CANCER METASTATIC
     Dosage: 160 MG/M2 DAILY;
  2. TEMOZOLOMIDE. [Suspect]
     Active Substance: TEMOZOLOMIDE
     Indication: PITUITARY CANCER METASTATIC
     Dosage: 160 MG/M2 DAILY;

REACTIONS (2)
  - Cerebral haemorrhage [Fatal]
  - Death [Fatal]
